FAERS Safety Report 15899334 (Version 1)
Quarter: 2019Q1

REPORT INFORMATION
  Report Type: Spontaneous
  Country: CA (occurrence: CA)
  Receive Date: 20190201
  Receipt Date: 20190201
  Transmission Date: 20190417
  Serious: Yes (Other)
  Sender: FDA-Public Use
  Company Number: CA-CELLTRION INC.-2019CA018388

PATIENT

DRUGS (8)
  1. INFLIXIMAB PFIZER (UNKNOWN) [Suspect]
     Active Substance: INFLIXIMAB
     Indication: CROHN^S DISEASE
     Dosage: 300 MG, UNK
     Route: 042
  2. IMURAN [Suspect]
     Active Substance: AZATHIOPRINE
     Dosage: UNK
     Route: 065
  3. SYNTHROID [Suspect]
     Active Substance: LEVOTHYROXINE SODIUM
     Indication: HYPOTHYROIDISM
     Dosage: UNK
     Route: 065
  4. SOLU-MEDROL [Suspect]
     Active Substance: METHYLPREDNISOLONE SODIUM SUCCINATE
     Dosage: UNK
     Route: 042
  5. FLAGYL [Suspect]
     Active Substance: METRONIDAZOLE\METRONIDAZOLE HYDROCHLORIDE
     Dosage: UNK
     Route: 065
  6. CIPROFLOXACIN LACTATE [Suspect]
     Active Substance: CIPROFLOXACIN LACTATE
     Dosage: UNK
     Route: 065
  7. TEVA RISEDRONATE [Suspect]
     Active Substance: RISEDRONATE SODIUM
     Indication: BONE DENSITY ABNORMAL
     Dosage: 35 MG, UNK
     Route: 065
  8. INFLIXIMAB PFIZER (UNKNOWN) [Suspect]
     Active Substance: INFLIXIMAB
     Dosage: 300 MG, UNK
     Route: 042

REACTIONS (2)
  - Pancreatitis [Unknown]
  - Pain [Unknown]
